FAERS Safety Report 7009722-X (Version None)
Quarter: 2010Q3

REPORT INFORMATION
  Report Type: 
  Country: None (occurrence: None)
  Receive Date: 20100903
  Receipt Date: 20090630
  Transmission Date: 20110219
  Serious: No
  Sender: FDA-Public Use
  Company Number: 2009-00274

PATIENT
  Age: 60 Year
  Sex: Female
  Weight: 46.7205 kg

DRUGS (5)
  1. ZICAM COLD REMEDY NASAL GEL [Suspect]
     Dosage: SPORADIC, 1 YEAR
     Dates: start: 20080601, end: 20090601
  2. VALTREX [Concomitant]
  3. PRAVASTATIN [Concomitant]
  4. BONIVA [Concomitant]
  5. ACTIVELLA [Concomitant]

REACTIONS (1)
  - ANOSMIA [None]
